FAERS Safety Report 11829839 (Version 1)
Quarter: 2015Q4

REPORT INFORMATION
  Report Type: Report from Study
  Country: KR (occurrence: KR)
  Receive Date: 20151212
  Receipt Date: 20151212
  Transmission Date: 20160305
  Serious: Yes (Hospitalization)
  Sender: FDA-Public Use
  Company Number: KR-ASTRAZENECA-2015SF23504

PATIENT
  Age: 860 Month
  Sex: Male

DRUGS (9)
  1. ISOKET RETARD [Concomitant]
     Indication: ARTERIOSCLEROSIS CORONARY ARTERY
     Route: 048
     Dates: start: 20150603
  2. FORXIGA [Suspect]
     Active Substance: DAPAGLIFLOZIN
     Indication: TYPE 2 DIABETES MELLITUS
     Route: 048
     Dates: start: 20150602, end: 20150903
  3. LIPITOR [Concomitant]
     Active Substance: ATORVASTATIN CALCIUM
     Indication: DYSLIPIDAEMIA
     Route: 048
     Dates: start: 20120926
  4. DEXID [Concomitant]
     Indication: DIABETIC NEUROPATHY
     Route: 048
     Dates: start: 20150602
  5. OLMETEC [Concomitant]
     Active Substance: OLMESARTAN MEDOXOMIL
     Indication: HYPERTENSION
     Route: 048
     Dates: start: 20150730
  6. DIABEX 1000 [Concomitant]
     Indication: HYPOGLYCAEMIA
     Route: 048
     Dates: start: 20150602, end: 20150903
  7. BISOPROLOL [Concomitant]
     Active Substance: BISOPROLOL
     Indication: HYPERTENSION
     Route: 048
     Dates: start: 20121221
  8. AMARYL [Concomitant]
     Active Substance: GLIMEPIRIDE
     Indication: HYPOGLYCAEMIA
     Route: 048
     Dates: start: 20130708, end: 20150903
  9. ASPIRIN. [Concomitant]
     Active Substance: ASPIRIN
     Indication: HYPERTENSION
     Route: 048
     Dates: start: 20150602

REACTIONS (1)
  - Hyperglycaemia [Recovered/Resolved]

NARRATIVE: CASE EVENT DATE: 201509
